FAERS Safety Report 8872806 (Version 1)
Quarter: 2012Q4

REPORT INFORMATION
  Report Type: Spontaneous
  Country: DE (occurrence: None)
  Receive Date: 20121024
  Receipt Date: 20121024
  Transmission Date: 20130627
  Serious: Yes (Hospitalization)
  Sender: FDA-Public Use
  Company Number: AUR-APL-2012-04477

PATIENT
  Age: 28 Day
  Sex: Male
  Weight: 5.44 kg

DRUGS (5)
  1. SERTRALINE (SERTRALINE) (SERTRALINE) [Suspect]
     Route: 064
     Dates: start: 20100101, end: 20111106
  2. SERTRALINE (SERTRALINE) (SERTRALINE) [Suspect]
  3. FOLIO FORTE (FOLIC ACID) [Concomitant]
  4. EUPHORBIUM (EUPHORBIUM COMP) [Concomitant]
  5. AMOXICILLIN PLUS (SPEKTRAMOX (2043401) [Concomitant]

REACTIONS (11)
  - Large for dates baby [None]
  - Neonatal respiratory distress syndrome [None]
  - Agitation neonatal [None]
  - Restlessness [None]
  - Hypertonia [None]
  - Patent ductus arteriosus [None]
  - Atrial septal defect [None]
  - Atrial septal defect [None]
  - Left atrial dilatation [None]
  - Congenital tricuspid valve incompetence [None]
  - Maternal drugs affecting foetus [None]
